FAERS Safety Report 25734718 (Version 1)
Quarter: 2025Q3

REPORT INFORMATION
  Report Type: Report from Study
  Country: EU (occurrence: EU)
  Receive Date: 20250828
  Receipt Date: 20250828
  Transmission Date: 20251020
  Serious: Yes (Other)
  Sender: AUROBINDO
  Company Number: EU-AUROBINDO-AUR-APL-2025-044288

PATIENT

DRUGS (5)
  1. ENALAPRIL [Interacting]
     Active Substance: ENALAPRIL
     Indication: Chronic hepatitis C
     Route: 065
  2. ATORVASTATIN [Interacting]
     Active Substance: ATORVASTATIN
     Indication: Chronic hepatitis C
     Route: 065
  3. OMEPRAZOLE [Interacting]
     Active Substance: OMEPRAZOLE
     Indication: Chronic hepatitis C
     Route: 065
  4. GLECAPREVIR\PIBRENTASVIR [Interacting]
     Active Substance: GLECAPREVIR\PIBRENTASVIR
     Indication: Chronic hepatitis C
     Route: 065
  5. DIPYRONE [Interacting]
     Active Substance: DIPYRONE
     Indication: Chronic hepatitis C
     Route: 065

REACTIONS (1)
  - Drug interaction [Unknown]
